FAERS Safety Report 24181652 (Version 1)
Quarter: 2024Q3

REPORT INFORMATION
  Report Type: Spontaneous
  Country: GB (occurrence: GB)
  Receive Date: 20240807
  Receipt Date: 20240807
  Transmission Date: 20241017
  Serious: Yes (Other)
  Sender: ESPERION THERAPEUTICS
  Company Number: None

PATIENT
  Age: 76 Year
  Sex: Female
  Weight: 125 kg

DRUGS (14)
  1. BEMPEDOIC ACID [Suspect]
     Active Substance: BEMPEDOIC ACID
     Indication: Ill-defined disorder
     Dosage: 180 MG, QD (180MG TABLETS TAKE ONE DAILY)
     Route: 065
     Dates: start: 20240516
  2. MOUNJARO [Concomitant]
     Active Substance: TIRZEPATIDE
     Indication: Ill-defined disorder
     Dosage: UNK (USE AS DIRECTED)
     Route: 065
     Dates: start: 20240718
  3. FLUTICASONE FUROATE [Concomitant]
     Active Substance: FLUTICASONE FUROATE
     Indication: Ill-defined disorder
     Dosage: 2 DF, BID (2 SPRAYS TO BE USED TWICE DAILY (START AFTER FI)
     Route: 065
     Dates: start: 20240423
  4. CITALOPRAM [Concomitant]
     Active Substance: CITALOPRAM\CITALOPRAM HYDROBROMIDE
     Indication: Ill-defined disorder
     Dosage: 1 DF, QD
     Route: 065
     Dates: start: 20240423
  5. EMPAGLIFLOZIN [Concomitant]
     Active Substance: EMPAGLIFLOZIN
     Indication: Ill-defined disorder
     Dosage: 1 DF, QD
     Route: 065
     Dates: start: 20240423
  6. ESOMEPRAZOLE [Concomitant]
     Active Substance: ESOMEPRAZOLE
     Indication: Ill-defined disorder
     Dosage: 1 DF, AS NEEDED (TAKE ONE DAILY WHEN REQUIRED)
     Route: 065
     Dates: start: 20240423
  7. GABAPENTIN [Concomitant]
     Active Substance: GABAPENTIN
     Indication: Ill-defined disorder
     Dosage: 1 DF, TID
     Route: 065
     Dates: start: 20240423
  8. GLUCOPHAGE [Concomitant]
     Active Substance: METFORMIN HYDROCHLORIDE
     Indication: Ill-defined disorder
     Dosage: 2 DF, BID
     Route: 065
     Dates: start: 20240423
  9. HUMULIN L [Concomitant]
     Active Substance: INSULIN HUMAN
     Indication: Ill-defined disorder
     Dosage: UNK (USE AS DIRECTED)
     Route: 065
     Dates: start: 20240423
  10. HYDROCORTISONE [Concomitant]
     Active Substance: HYDROCORTISONE\HYDROCORTISONE ACETATE
     Indication: Ill-defined disorder
     Dosage: UNK UNK, BID (APPLY TWICE DAILY)
     Route: 065
     Dates: start: 20240423
  11. HYPROMELLOSES [Concomitant]
     Active Substance: HYPROMELLOSES
     Indication: Ill-defined disorder
     Dosage: UNK UNK, AS NEEDED (APPLY AS NEEDED)
     Route: 065
     Dates: start: 20240423
  12. LOSARTAN [Concomitant]
     Active Substance: LOSARTAN
     Indication: Ill-defined disorder
     Dosage: 1 DF, QD (ONE DAILY AT 6PM)
     Route: 065
     Dates: start: 20240423
  13. TRAMADOL [Concomitant]
     Active Substance: TRAMADOL\TRAMADOL HYDROCHLORIDE
     Indication: Ill-defined disorder
     Dosage: 2 DF, QID
     Route: 065
     Dates: start: 20240423
  14. TRULICITY [Concomitant]
     Active Substance: DULAGLUTIDE
     Indication: Ill-defined disorder
     Dosage: UNK (USE AS DIRECTED)
     Route: 065
     Dates: start: 20240423, end: 20240718

REACTIONS (2)
  - Myalgia [Recovered/Resolved]
  - Pain in extremity [Recovered/Resolved]
